FAERS Safety Report 7956717-5 (Version None)
Quarter: 2011Q4

REPORT INFORMATION
  Report Type: 
  Country: None (occurrence: None)
  Receive Date: 20111205
  Receipt Date: 20111130
  Transmission Date: 20120403
  Serious: Yes (Death, Hospitalization)
  Sender: FDA-Public Use
  Company Number: GB-CUBIST-2011S1000610

PATIENT
  Sex: Male

DRUGS (1)
  1. CUBICIN [Suspect]
     Indication: PRODUCT USED FOR UNKNOWN INDICATION
     Dosage: DOSE UNIT:U UNKNOWN
     Route: 065

REACTIONS (7)
  - ACUTE MYELOID LEUKAEMIA [None]
  - SEPSIS [None]
  - BACTERAEMIA [None]
  - ARTHRITIS BACTERIAL [None]
  - GENERAL PHYSICAL HEALTH DETERIORATION [None]
  - TERMINAL STATE [None]
  - INTERVERTEBRAL DISCITIS [None]
